FAERS Safety Report 18048157 (Version 2)
Quarter: 2021Q1

REPORT INFORMATION
  Report Type: Spontaneous
  Country: US (occurrence: US)
  Receive Date: 20200721
  Receipt Date: 20210316
  Transmission Date: 20210419
  Serious: Yes (Other)
  Sender: FDA-Public Use
  Company Number: US-GLAXOSMITHKLINE-US2020136950

PATIENT
  Sex: Male

DRUGS (7)
  1. ZANTAC [Suspect]
     Active Substance: RANITIDINE HYDROCHLORIDE
     Route: 065
  2. ZANTAC [Suspect]
     Active Substance: RANITIDINE HYDROCHLORIDE
     Indication: OESOPHAGEAL ACHALASIA
     Dosage: 150 MG, QD
     Route: 065
     Dates: start: 198501, end: 200501
  3. RANITIDINE. [Suspect]
     Active Substance: RANITIDINE
     Indication: OESOPHAGEAL ACHALASIA
     Dosage: 150 MG, QD
     Route: 065
     Dates: start: 198501, end: 200501
  4. RANITIDINE CAPSULE [Suspect]
     Active Substance: RANITIDINE
     Indication: OESOPHAGEAL ACHALASIA
     Dosage: 150 MG, QD
     Route: 065
     Dates: start: 198501, end: 200501
  5. RANITIDINE. [Suspect]
     Active Substance: RANITIDINE
     Indication: OESOPHAGEAL ACHALASIA
     Dosage: 150 MG BOTH
     Route: 065
     Dates: start: 198501, end: 200501
  6. ZANTAC [Suspect]
     Active Substance: RANITIDINE HYDROCHLORIDE
     Indication: OESOPHAGEAL ACHALASIA
     Dosage: 150 MG, QD
     Route: 065
     Dates: start: 198501, end: 200501
  7. RANITIDINE. [Suspect]
     Active Substance: RANITIDINE
     Indication: OESOPHAGEAL ACHALASIA
     Dosage: 150 MG, QD
     Route: 065
     Dates: start: 198501, end: 200501

REACTIONS (1)
  - Bladder cancer [Unknown]
